FAERS Safety Report 24325205 (Version 1)
Quarter: 2024Q3

REPORT INFORMATION
  Report Type: Spontaneous
  Country: HR (occurrence: DE)
  Receive Date: 20240916
  Receipt Date: 20240916
  Transmission Date: 20241016
  Serious: Yes (Hospitalization, Other)
  Sender: JOHNSON AND JOHNSON
  Company Number: HR-BAYER-2024A131834

PATIENT
  Age: 77 Year
  Sex: Male

DRUGS (3)
  1. XARELTO [Suspect]
     Active Substance: RIVAROXABAN
     Indication: Thrombosis
     Dosage: 15 MG, QD
     Route: 048
     Dates: end: 20240817
  2. IMETELSTAT [Concomitant]
     Active Substance: IMETELSTAT
     Indication: Myelodysplastic syndrome
     Dates: start: 20200817
  3. IMETELSTAT [Concomitant]
     Active Substance: IMETELSTAT
     Indication: Myelodysplastic syndrome
     Dosage: UNK
     Route: 042
     Dates: start: 20201125

REACTIONS (4)
  - Craniocerebral injury [Not Recovered/Not Resolved]
  - Fall [Not Recovered/Not Resolved]
  - Cerebral haemorrhage [Unknown]
  - Syncope [Recovered/Resolved]

NARRATIVE: CASE EVENT DATE: 20240817
